FAERS Safety Report 5070163-6 (Version None)
Quarter: 2006Q3

REPORT INFORMATION
  Report Type: 
  Country: None (occurrence: None)
  Receive Date: 20060802
  Receipt Date: 20060802
  Transmission Date: 20061208
  Serious: Yes (Hospitalization)
  Sender: FDA-Public Use
  Company Number: None

PATIENT
  Age: 28 Year
  Sex: Male
  Weight: 101.6057 kg

DRUGS (9)
  1. AMBISOME [Suspect]
     Indication: ANTIFUNGAL PROPHYLAXIS
     Dosage: 1000 MG/250 ML ONCE DAILY IV
     Route: 042
     Dates: start: 20060713, end: 20060714
  2. VANCOMYCIN [Suspect]
     Indication: ALPHA HAEMOLYTIC STREPTOCOCCAL INFECTION
     Dosage: 1.25 GM/12.5 ML Q8H IV
     Route: 042
     Dates: start: 20060714, end: 20060715
  3. OXYCODONE HCL [Concomitant]
  4. MORPHINE [Concomitant]
  5. ESOMEPRAZOLE MAGNESIUM [Concomitant]
  6. PSEUDOEPHEDRINE HCL [Concomitant]
  7. . [Concomitant]
  8. PROMETHAZINE [Concomitant]
  9. MORPHINE [Concomitant]

REACTIONS (1)
  - BLOOD CREATININE INCREASED [None]
